FAERS Safety Report 19361755 (Version 1)
Quarter: 2021Q2

REPORT INFORMATION
  Report Type: Report from Study
  Country: None (occurrence: US)
  Receive Date: 20210602
  Receipt Date: 20210602
  Transmission Date: 20210717
  Serious: No
  Sender: FDA-Public Use
  Company Number: US-MDD US OPERATIONS-USW202006-001238

PATIENT
  Age: 66 Year
  Sex: Male
  Weight: 74.84 kg

DRUGS (7)
  1. CARBIDOPA LEVODOPA ENTACAPONE [Concomitant]
     Active Substance: CARBIDOPA\ENTACAPONE\LEVODOPA
     Dosage: 50?200?200 MG
  2. APOKYN [Suspect]
     Active Substance: APOMORPHINE HYDROCHLORIDE
     Route: 058
     Dates: start: 20191221
  3. APOKYN [Suspect]
     Active Substance: APOMORPHINE HYDROCHLORIDE
  4. APOKYN [Suspect]
     Active Substance: APOMORPHINE HYDROCHLORIDE
     Indication: PARKINSON^S DISEASE
     Route: 058
     Dates: start: 20191222
  5. CARBIDOPA LEVODOPA [Concomitant]
     Active Substance: CARBIDOPA\LEVODOPA
     Dosage: NOT PROVIDED
  6. AMITIZA [Concomitant]
     Active Substance: LUBIPROSTONE
     Dosage: NOT PROVIDED
  7. CARBIDOPA LEVODOPA ENTACAPONE [Concomitant]
     Active Substance: CARBIDOPA\ENTACAPONE\LEVODOPA
     Dosage: 1.5 TABLETS OF 50?200?200 MG

REACTIONS (10)
  - Musculoskeletal discomfort [Recovered/Resolved]
  - Hallucination [Recovering/Resolving]
  - Overdose [Unknown]
  - Pallor [Recovered/Resolved]
  - Nausea [Recovered/Resolved]
  - Nausea [Recovered/Resolved]
  - Fall [Recovered/Resolved]
  - Drug effect less than expected [Unknown]
  - Choking [Recovered/Resolved]
  - Dyskinesia [Unknown]

NARRATIVE: CASE EVENT DATE: 20200401
